FAERS Safety Report 4388328-5 (Version None)
Quarter: 2004Q2

REPORT INFORMATION
  Report Type: 
  Country: None (occurrence: None)
  Receive Date: 20040625
  Receipt Date: 20040615
  Transmission Date: 20050107
  Serious: Yes (Hospitalization, Other)
  Sender: FDA-Public Use
  Company Number: HQWYE516517JUN04

PATIENT
  Age: 46 Year
  Sex: Female

DRUGS (3)
  1. EFFEXOR [Suspect]
     Indication: DEPRESSION
     Dosage: MORE THAN THE RECOMMENDED AMOUNT (EXACT OVERDOSE AMOUNT UNKNOWN)
     Route: 048
  2. ADVIL [Suspect]
     Indication: IRRITABILITY
     Dosage: 600 MG 3X PER 1 DAY ORAL
     Route: 048
  3. ADVIL [Suspect]
     Indication: NICOTINE DEPENDENCE
     Dosage: 600 MG 3X PER 1 DAY ORAL
     Route: 048

REACTIONS (10)
  - ACCIDENTAL OVERDOSE [None]
  - BLOOD PRESSURE INCREASED [None]
  - DELIRIUM [None]
  - DRUG INTERACTION [None]
  - DRUG LEVEL INCREASED [None]
  - HALLUCINATION, AUDITORY [None]
  - IRRITABILITY [None]
  - MEDICATION ERROR [None]
  - SEROTONIN SYNDROME [None]
  - THINKING ABNORMAL [None]
